FAERS Safety Report 10402055 (Version 1)
Quarter: 2014Q3

REPORT INFORMATION
  Report Type: Spontaneous
  Country: GB (occurrence: GB)
  Receive Date: 20140822
  Receipt Date: 20140822
  Transmission Date: 20150326
  Serious: Yes (Hospitalization)
  Sender: FDA-Public Use
  Company Number: GB-MYLAN-2014M1002078

PATIENT

DRUGS (3)
  1. AMITRIPTYLINE [Suspect]
     Active Substance: AMITRIPTYLINE
     Indication: INTENTIONAL OVERDOSE
     Route: 048
  2. AMITRIPTYLINE [Suspect]
     Active Substance: AMITRIPTYLINE
     Indication: OFF LABEL USE
  3. LIRAGLUTIDE [Suspect]
     Active Substance: LIRAGLUTIDE
     Indication: INTENTIONAL OVERDOSE
     Dosage: 36MG
     Route: 058

REACTIONS (14)
  - Hypotension [None]
  - Hyponatraemia [None]
  - Polyuria [Recovered/Resolved]
  - Hypokalaemia [None]
  - Pulseless electrical activity [Recovered/Resolved]
  - Apnoea [None]
  - Suicide attempt [None]
  - Cardiac arrest [Recovered/Resolved]
  - Electrolyte imbalance [Recovered/Resolved]
  - Intentional overdose [Recovered/Resolved]
  - Vitamin B12 deficiency [None]
  - Hypophosphataemia [None]
  - Generalised tonic-clonic seizure [Recovered/Resolved]
  - Intentional self-injury [None]
